FAERS Safety Report 5456996-2 (Version None)
Quarter: 2007Q3

REPORT INFORMATION
  Report Type: 
  Country: None (occurrence: None)
  Receive Date: 20070918
  Receipt Date: 20070330
  Transmission Date: 20080115
  Serious: Yes (Other)
  Sender: FDA-Public Use
  Company Number: US-ASTRAZENECA-2006UW27768

PATIENT
  Age: 54 Year
  Sex: Female
  Weight: 80.5 kg

DRUGS (4)
  1. SEROQUEL [Suspect]
     Route: 048
     Dates: start: 20000101, end: 20040101
  2. HOODIA [Concomitant]
     Indication: WEIGHT CONTROL
  3. RISPERDAL [Concomitant]
     Dates: start: 20000101, end: 20030101
  4. PAXIL [Concomitant]
     Dates: start: 20050101

REACTIONS (2)
  - DIABETES MELLITUS [None]
  - DIABETIC COMA [None]
